FAERS Safety Report 7159072-6 (Version None)
Quarter: 2010Q4

REPORT INFORMATION
  Report Type: 
  Country: None (occurrence: None)
  Receive Date: 20101214
  Receipt Date: 20100726
  Transmission Date: 20110411
  Serious: No
  Sender: FDA-Public Use
  Company Number: US-ASTRAZENECA-2010SE34801

PATIENT
  Age: 70 Year
  Sex: Female
  Weight: 55.3 kg

DRUGS (2)
  1. CRESTOR [Suspect]
     Dosage: DAILY
     Route: 048
     Dates: end: 20100701
  2. PLAVIX [Suspect]

REACTIONS (4)
  - PRURITUS GENERALISED [None]
  - PURPLE GLOVE SYNDROME [None]
  - PYREXIA [None]
  - RASH [None]
